FAERS Safety Report 8917951 (Version 3)
Quarter: 2014Q2

REPORT INFORMATION
  Report Type: Spontaneous
  Country: US (occurrence: US)
  Receive Date: 20121120
  Receipt Date: 20140603
  Transmission Date: 20141212
  Serious: No
  Sender: FDA-Public Use
  Company Number: US-ASTRAZENECA-2012SE16136

PATIENT
  Age: 57 Year
  Sex: Female
  Weight: 83.9 kg

DRUGS (6)
  1. NEXIUM [Suspect]
     Indication: GASTROOESOPHAGEAL REFLUX DISEASE
     Route: 048
  2. NEXIUM [Suspect]
     Indication: GASTROOESOPHAGEAL REFLUX DISEASE
     Route: 048
     Dates: start: 2004
  3. SYMBICORT [Suspect]
     Indication: COUGH
     Dosage: 160 4.5 MG 2 PUFFS TWICE A DAY
     Route: 055
     Dates: start: 2010, end: 201401
  4. SYMBICORT [Suspect]
     Indication: WHEEZING
     Dosage: 160 4.5 MG 2 PUFFS TWICE A DAY
     Route: 055
     Dates: start: 2010, end: 201401
  5. LEVOTHYROXINE [Concomitant]
     Indication: THYROID DISORDER
     Route: 048
     Dates: start: 2009
  6. VITAMIN B12 SHOT EVERY OTHER WEEK [Concomitant]
     Indication: VITAMIN B12 ABNORMAL
     Dosage: EVERY OTHER WEEK
     Dates: start: 2013

REACTIONS (14)
  - Oesophageal pain [Unknown]
  - Dyspnoea [Unknown]
  - Vitamin B12 decreased [Unknown]
  - Cough [Unknown]
  - Asthma [Unknown]
  - Dyspepsia [Unknown]
  - Dyspnoea [Unknown]
  - Gastrooesophageal reflux disease [Unknown]
  - Abdominal pain upper [Unknown]
  - Thyroid disorder [Unknown]
  - Malaise [Unknown]
  - Drug dose omission [Unknown]
  - Off label use [Unknown]
  - Off label use [Unknown]
